FAERS Safety Report 4588019-1 (Version None)
Quarter: 2005Q1

REPORT INFORMATION
  Report Type: 
  Country: None (occurrence: None)
  Receive Date: 20050217
  Receipt Date: 20050207
  Transmission Date: 20050727
  Serious: Yes (Other)
  Sender: FDA-Public Use
  Company Number: C-05-0010

PATIENT
  Age: 65 Year
  Sex: Female
  Weight: 73.9363 kg

DRUGS (6)
  1. LACTULOSE [Suspect]
     Indication: HYPERAMMONAEMIA
     Dosage: 3 TBSP., TWICE DAILY, ORALLY
     Route: 048
     Dates: start: 20041001
  2. NEOMYCIN [Concomitant]
  3. FUROSEMIDE [Concomitant]
  4. SPIRONOLACTONE [Concomitant]
  5. GLYBURIDE [Concomitant]
  6. METFORMIN [Concomitant]

REACTIONS (3)
  - DIARRHOEA [None]
  - FREQUENT BOWEL MOVEMENTS [None]
  - NAUSEA [None]
